FAERS Safety Report 8569786-9 (Version None)
Quarter: 2012Q3

REPORT INFORMATION
  Report Type: 
  Country: None (occurrence: None)
  Receive Date: 20120803
  Receipt Date: 20120213
  Transmission Date: 20120928
  Serious: No
  Sender: FDA-Public Use
  Company Number: US-ABBOTT-12P-163-0903787-00

PATIENT
  Sex: Male
  Weight: 99.426 kg

DRUGS (8)
  1. NIASPAN [Suspect]
     Dosage: AT BEDTIME
  2. METOPROLOL TARTRATE [Concomitant]
     Indication: PRODUCT USED FOR UNKNOWN INDICATION
  3. ASPIRIN [Concomitant]
     Indication: BLOOD CHOLESTEROL ABNORMAL
     Dosage: WITH NIASPAN AT BEDTIME
  4. CRESTOR [Concomitant]
     Indication: PRODUCT USED FOR UNKNOWN INDICATION
  5. NIASPAN [Suspect]
     Indication: BLOOD CHOLESTEROL ABNORMAL
  6. TAMUSLIN [Concomitant]
     Indication: PRODUCT USED FOR UNKNOWN INDICATION
  7. LISINOPRIL [Concomitant]
     Indication: PRODUCT USED FOR UNKNOWN INDICATION
     Dosage: IN THE MORNING
  8. NIASPAN [Suspect]

REACTIONS (2)
  - PRURITUS GENERALISED [None]
  - FEELING HOT [None]
